FAERS Safety Report 8041136-6 (Version None)
Quarter: 2012Q1

REPORT INFORMATION
  Report Type: 
  Country: None (occurrence: None)
  Receive Date: 20120109
  Receipt Date: 20120104
  Transmission Date: 20120608
  Serious: Yes (Other)
  Sender: FDA-Public Use
  Company Number: GER/UKI/11/0022239

PATIENT
  Age: 35 Year
  Sex: Female
  Weight: 57.15 kg

DRUGS (2)
  1. FINASTERIDE [Suspect]
     Indication: PRODUCT USED FOR UNKNOWN INDICATION
  2. FOLIC ACID [Concomitant]

REACTIONS (3)
  - ACCIDENTAL EXPOSURE [None]
  - MATERNAL EXPOSURE DURING PREGNANCY [None]
  - NO ADVERSE EVENT [None]
